FAERS Safety Report 16361859 (Version 5)
Quarter: 2020Q1

REPORT INFORMATION
  Report Type: Spontaneous
  Country: US (occurrence: US)
  Receive Date: 20190528
  Receipt Date: 20200117
  Transmission Date: 20200409
  Serious: Yes (Other)
  Sender: FDA-Public Use
  Company Number: US-PFIZER INC-2019225179

PATIENT
  Age: 72 Year
  Sex: Male

DRUGS (16)
  1. NAPROXEN. [Concomitant]
     Active Substance: NAPROXEN
     Dosage: 500 MG, AS NEEDED (BID PRN)
  2. ASPIRIN. [Concomitant]
     Active Substance: ASPIRIN
     Dosage: 81 MG, DAILY
     Route: 048
  3. KEPPRA [Concomitant]
     Active Substance: LEVETIRACETAM
     Dosage: 2 DF, 2X/DAY
     Route: 048
  4. NAMENDA [Concomitant]
     Active Substance: MEMANTINE HYDROCHLORIDE
     Dosage: 10 MG, 2X/DAY
     Route: 048
  5. DILANTIN [Suspect]
     Active Substance: PHENYTOIN
     Dosage: 100 MG, 4X/DAY (2 IN MORNING AND 2 IN NIGHT)
     Route: 048
  6. DILANTIN [Suspect]
     Active Substance: PHENYTOIN
     Indication: SEIZURE
     Dosage: 100 MG, 2X/DAY
     Route: 048
  7. DEPAKOTE [Concomitant]
     Active Substance: DIVALPROEX SODIUM
     Dosage: 2 DF, 3X/DAY
  8. PERCOCET [Concomitant]
     Active Substance: ACETAMINOPHEN\OXYCODONE HYDROCHLORIDE
     Indication: PAIN
     Dosage: (5/325 PRN), AS NEEDED
  9. KEPPRA [Concomitant]
     Active Substance: LEVETIRACETAM
     Dosage: 750 MG, 4X/DAY (2 TABS TWICE DAILY)
  10. ARICEPT [Concomitant]
     Active Substance: DONEPEZIL HYDROCHLORIDE
     Dosage: 10 MG, 1X/DAY
     Route: 048
     Dates: start: 20161122
  11. AZELASTINE HCL [Concomitant]
     Active Substance: AZELASTINE HYDROCHLORIDE
     Dosage: UNK
  12. DILANTIN [Suspect]
     Active Substance: PHENYTOIN
     Dosage: UNK, DAILY (200MG AT NIGHT TIME AND 100 MG IN MORNING)
     Route: 048
  13. ACETIC ACID. [Concomitant]
     Active Substance: ACETIC ACID
     Dosage: UNK
  14. CLARINEX [Concomitant]
     Active Substance: DESLORATADINE
     Dosage: 5 MG, AS NEEDED (DAILY PRN)
     Route: 048
  15. NEXIUM [Concomitant]
     Active Substance: ESOMEPRAZOLE MAGNESIUM
     Dosage: 40 MG, DAILY
     Route: 048
  16. LEXAPRO [Concomitant]
     Active Substance: ESCITALOPRAM OXALATE
     Dosage: 10 MG, 1X/DAY
     Route: 048
     Dates: start: 20161122

REACTIONS (11)
  - Depression [Unknown]
  - Memory impairment [Unknown]
  - Confusional state [Unknown]
  - Toxicity to various agents [Unknown]
  - Fatigue [Unknown]
  - Parkinsonism [Unknown]
  - Cognitive disorder [Unknown]
  - Speech disorder [Unknown]
  - Cerebral cyst [Unknown]
  - Cerebral atrophy [Unknown]
  - Cerebellar atrophy [Unknown]

NARRATIVE: CASE EVENT DATE: 20160524
